FAERS Safety Report 15344373 (Version 3)
Quarter: 2019Q1

REPORT INFORMATION
  Report Type: Spontaneous
  Country: US (occurrence: US)
  Receive Date: 20180903
  Receipt Date: 20190121
  Transmission Date: 20190417
  Serious: Yes (Hospitalization)
  Sender: FDA-Public Use
  Company Number: US-BIOGEN-2018BI00626456

PATIENT
  Age: 1 Year
  Sex: Female

DRUGS (1)
  1. SPINRAZA [Suspect]
     Active Substance: NUSINERSEN
     Indication: SPINAL MUSCULAR ATROPHY
     Route: 065
     Dates: start: 20171020

REACTIONS (4)
  - Pneumonia aspiration [Recovered/Resolved]
  - Pulmonary oedema [Recovered/Resolved]
  - Human rhinovirus test positive [Recovered/Resolved]
  - Lung hyperinflation [Recovered/Resolved]

NARRATIVE: CASE EVENT DATE: 20180824
